FAERS Safety Report 4542982-3 (Version None)
Quarter: 2005Q1

REPORT INFORMATION
  Report Type: 
  Country: None (occurrence: None)
  Receive Date: 20050103
  Receipt Date: 20041220
  Transmission Date: 20050727
  Serious: Yes (Other)
  Sender: FDA-Public Use
  Company Number: FR-JNJFOC-20041205695

PATIENT
  Sex: Female

DRUGS (2)
  1. REMICADE [Suspect]
     Indication: RHEUMATOID ARTHRITIS
     Dosage: 15TH INFUSION.
     Route: 042
  2. METHOTREXATE [Concomitant]

REACTIONS (3)
  - ABDOMINAL PAIN [None]
  - BACILLUS INFECTION [None]
  - TUBERCULOSIS [None]
